FAERS Safety Report 8423114-8 (Version None)
Quarter: 2012Q2

REPORT INFORMATION
  Report Type: 
  Country: None (occurrence: None)
  Receive Date: 20120608
  Receipt Date: 20120605
  Transmission Date: 20120825
  Serious: No
  Sender: FDA-Public Use
  Company Number: US-BAYER-2012-056106

PATIENT
  Sex: Female

DRUGS (1)
  1. MENOSTAR [Suspect]
     Indication: MENOPAUSAL SYMPTOMS
     Dosage: UNK
     Dates: start: 20120601

REACTIONS (4)
  - NAUSEA [None]
  - ABDOMINAL DISTENSION [None]
  - FEELING ABNORMAL [None]
  - HEADACHE [None]
